FAERS Safety Report 13058163 (Version 2)
Quarter: 2017Q1

REPORT INFORMATION
  Report Type: Spontaneous
  Country: BR (occurrence: BR)
  Receive Date: 20161223
  Receipt Date: 20170112
  Transmission Date: 20170428
  Serious: Yes (Hospitalization, Other)
  Sender: FDA-Public Use
  Company Number: BR-ASTRAZENECA-2016SF32456

PATIENT
  Age: 632 Month
  Sex: Female
  Weight: 85 kg

DRUGS (11)
  1. LOSARTAN. [Concomitant]
     Active Substance: LOSARTAN
     Dates: start: 201601
  2. CHLORTALIDONE [Concomitant]
     Active Substance: CHLORTHALIDONE
     Dates: start: 201601
  3. REGULAR INSULIN [Concomitant]
     Active Substance: INSULIN NOS
     Dates: start: 201601
  4. SELOZOK [Suspect]
     Active Substance: METOPROLOL SUCCINATE
     Indication: ARRHYTHMIA
     Dosage: 50 MG, TWO TIMES A DAY, MEDLEY MANUFACTURED
     Route: 048
     Dates: start: 201612
  5. NPH INSULIN [Concomitant]
     Active Substance: INSULIN BEEF
     Dates: start: 201601
  6. FENOFIBRATE. [Concomitant]
     Active Substance: FENOFIBRATE
     Dates: start: 201601
  7. ATORVASTATIN [Concomitant]
     Active Substance: ATORVASTATIN
     Dates: start: 201601
  8. SELOZOK [Suspect]
     Active Substance: METOPROLOL SUCCINATE
     Indication: ARRHYTHMIA
     Route: 048
     Dates: start: 201601, end: 201612
  9. ALOPURINOL [Concomitant]
     Active Substance: ALLOPURINOL
     Dates: start: 201601
  10. SELOZOK [Suspect]
     Active Substance: METOPROLOL SUCCINATE
     Indication: ARRHYTHMIA
     Route: 048
     Dates: start: 201601, end: 201601
  11. MAREVAN [Concomitant]
     Active Substance: WARFARIN SODIUM
     Dates: start: 201601

REACTIONS (5)
  - Arrhythmia [Recovered/Resolved]
  - Weight increased [Not Recovered/Not Resolved]
  - Embolic stroke [Recovered/Resolved]
  - Off label use [Not Recovered/Not Resolved]
  - Paraesthesia [Recovered/Resolved]

NARRATIVE: CASE EVENT DATE: 201601
